FAERS Safety Report 7177361-6 (Version None)
Quarter: 2010Q4

REPORT INFORMATION
  Report Type: 
  Country: None (occurrence: None)
  Receive Date: 20101220
  Receipt Date: 20101207
  Transmission Date: 20110411
  Serious: Yes (Other)
  Sender: FDA-Public Use
  Company Number: PHHY2010US61163

PATIENT
  Sex: Female
  Weight: 88.45 kg

DRUGS (9)
  1. RECLAST [Suspect]
     Indication: OSTEOPOROSIS
     Dosage: 5 MG YEARLY
     Route: 042
     Dates: start: 20100318, end: 20100318
  2. ASPIRIN [Concomitant]
     Indication: GASTROINTESTINAL HAEMORRHAGE
     Dosage: UNK
  3. IRON [Concomitant]
     Indication: RASH
     Dosage: UNK
  4. LYRICA [Concomitant]
     Indication: HEADACHE
     Dosage: UNK
  5. GABAPENTIN [Concomitant]
     Indication: SWELLING
     Dosage: UNK
  6. BONIVA [Concomitant]
     Indication: BONE PAIN
     Dosage: UNK
  7. BONIVA [Concomitant]
     Indication: MYALGIA
  8. ACTONEL [Concomitant]
     Indication: HEADACHE
     Dosage: UNK
  9. ACTONEL [Concomitant]
     Indication: EAR PAIN

REACTIONS (16)
  - ABDOMINAL PAIN UPPER [None]
  - ARTHRALGIA [None]
  - BLOOD TRIGLYCERIDES INCREASED [None]
  - CHILLS [None]
  - FATIGUE [None]
  - HYPERCHOLESTEROLAEMIA [None]
  - HYPERTENSION [None]
  - INFLUENZA LIKE ILLNESS [None]
  - MALAISE [None]
  - MYALGIA [None]
  - NAUSEA [None]
  - PAIN IN EXTREMITY [None]
  - PARAESTHESIA [None]
  - PERIPHERAL ARTERIAL OCCLUSIVE DISEASE [None]
  - SYSTEMIC LUPUS ERYTHEMATOSUS [None]
  - VOMITING [None]
